FAERS Safety Report 6595922-X (Version None)
Quarter: 2010Q1

REPORT INFORMATION
  Report Type: 
  Country: None (occurrence: None)
  Receive Date: 20100204
  Receipt Date: 20091119
  Transmission Date: 20100710
  Serious: No
  Sender: FDA-Public Use
  Company Number: 2009-09980

PATIENT
  Age: 73 Year
  Sex: Male

DRUGS (1)
  1. RAPAFLO [Suspect]
     Indication: BENIGN PROSTATIC HYPERPLASIA
     Dosage: 1 CAPSULE DAILY, ORAL
     Route: 048
     Dates: start: 20091112

REACTIONS (4)
  - DIZZINESS [None]
  - EJACULATION FAILURE [None]
  - ERECTILE DYSFUNCTION [None]
  - HEADACHE [None]
